FAERS Safety Report 10295343 (Version 2)
Quarter: 2014Q3

REPORT INFORMATION
  Report Type: Spontaneous
  Country: US (occurrence: US)
  Receive Date: 20140710
  Receipt Date: 20140710
  Transmission Date: 20150326
  Serious: No
  Sender: FDA-Public Use
  Company Number: US-PURDUE-USA-2014-0113165

PATIENT
  Age: 58 Year
  Sex: Male

DRUGS (1)
  1. BUTRANS [Suspect]
     Active Substance: BUPRENORPHINE
     Indication: PAIN
     Dosage: 15 MCG/HR, WEEKLY
     Route: 062
     Dates: start: 201312

REACTIONS (7)
  - Impaired healing [Unknown]
  - Drug ineffective [Unknown]
  - Device leakage [Unknown]
  - Application site pruritus [Unknown]
  - Application site exfoliation [Unknown]
  - Application site irritation [Not Recovered/Not Resolved]
  - Application site erythema [Unknown]

NARRATIVE: CASE EVENT DATE: 201311
